FAERS Safety Report 7535298-4 (Version None)
Quarter: 2011Q2

REPORT INFORMATION
  Report Type: 
  Country: None (occurrence: None)
  Receive Date: 20110609
  Receipt Date: 20071226
  Transmission Date: 20111010
  Serious: Yes (Death)
  Sender: FDA-Public Use
  Company Number: PHHY2007JP00836

PATIENT
  Sex: Female

DRUGS (3)
  1. MUNOBAL [Concomitant]
     Dosage: 10 DF, UNK
     Dates: start: 20030716
  2. DIOVAN [Suspect]
     Indication: HYPERTENSION
     Dosage: 80 MG, QD
     Route: 048
     Dates: start: 20030716
  3. MERISLON [Concomitant]
     Dosage: 12 DF, UNK

REACTIONS (2)
  - FALL [None]
  - INJURY [None]
